FAERS Safety Report 21723283 (Version 1)
Quarter: 2022Q4

REPORT INFORMATION
  Report Type: Spontaneous
  Country: US (occurrence: None)
  Receive Date: 20221212
  Receipt Date: 20221212
  Transmission Date: 20230112
  Serious: Yes (Other)
  Sender: FDA-Public Use
  Company Number: None

PATIENT
  Age: 39 Year
  Sex: Female
  Weight: 58.5 kg

DRUGS (1)
  1. BUPROPION [Suspect]
     Active Substance: BUPROPION
     Indication: Depression
     Dosage: OTHER QUANTITY : 2 TABLET(S);?
     Route: 048
     Dates: start: 20221103

REACTIONS (7)
  - Therapy non-responder [None]
  - Symptom recurrence [None]
  - Anxiety [None]
  - Palpitations [None]
  - Insomnia [None]
  - Nausea [None]
  - Muscle twitching [None]

NARRATIVE: CASE EVENT DATE: 20221116
